FAERS Safety Report 4768528-2 (Version None)
Quarter: 2005Q3

REPORT INFORMATION
  Report Type: 
  Country: None (occurrence: None)
  Receive Date: 20050914
  Receipt Date: 20050901
  Transmission Date: 20060218
  Serious: Yes (Death, Other)
  Sender: FDA-Public Use
  Company Number: PHBS2005DE13360

PATIENT
  Age: 49 Year
  Sex: Male

DRUGS (3)
  1. DAUNORUBICIN HCL [Concomitant]
     Dosage: 16 CYCLES 20 MG EACH
     Route: 065
     Dates: start: 20031201, end: 20040601
  2. ZOLEDRONIC ACID [Suspect]
     Indication: PROSTATE CANCER METASTATIC
     Dosage: 4 MG, QMO
     Route: 042
     Dates: start: 20040401, end: 20040601
  3. IBANDRONIC ACID [Suspect]
     Dosage: 4 MG EVERY 4 WEEKS
     Dates: start: 20010801, end: 20031001

REACTIONS (6)
  - ACTINOMYCOSIS [None]
  - ANAEMIA OF MALIGNANT DISEASE [None]
  - ASEPTIC NECROSIS BONE [None]
  - OSTEOMYELITIS [None]
  - THROMBOCYTOPENIA [None]
  - WOUND DEHISCENCE [None]
